FAERS Safety Report 24724259 (Version 2)
Quarter: 2025Q2

REPORT INFORMATION
  Report Type: Spontaneous
  Country: DE (occurrence: DE)
  Receive Date: 20241211
  Receipt Date: 20250531
  Transmission Date: 20250717
  Serious: Yes (Other)
  Sender: STEMLINE THERAPEUTICS
  Company Number: DE-STEMLINE THERAPEUTICS, INC-2024-STML-DE006496

PATIENT

DRUGS (1)
  1. ORSERDU [Suspect]
     Active Substance: ELACESTRANT
     Indication: Product used for unknown indication
     Dosage: 345 MG, ONCE DAILY
     Route: 065

REACTIONS (4)
  - Dementia [Not Recovered/Not Resolved]
  - Product use complaint [Unknown]
  - Intentional dose omission [Unknown]
  - Product size issue [Unknown]
